FAERS Safety Report 12837254 (Version 1)
Quarter: 2016Q4

REPORT INFORMATION
  Report Type: Spontaneous
  Country: US (occurrence: US)
  Receive Date: 20161009
  Receipt Date: 20161009
  Transmission Date: 20170207
  Serious: No
  Sender: FDA-Public Use
  Company Number: None

PATIENT
  Age: 6 Year
  Sex: Male
  Weight: 25.2 kg

DRUGS (1)
  1. MONTELUKAST SOD 4 MG TAB CHEW [Suspect]
     Active Substance: MONTELUKAST SODIUM
     Indication: MULTIPLE ALLERGIES
     Route: 048
     Dates: start: 20160816, end: 20160923

REACTIONS (1)
  - Tic [None]

NARRATIVE: CASE EVENT DATE: 20160906
